FAERS Safety Report 5894989-1 (Version None)
Quarter: 2008Q3

REPORT INFORMATION
  Report Type: 
  Country: None (occurrence: None)
  Receive Date: 20080924
  Receipt Date: 20080914
  Transmission Date: 20090109
  Serious: Yes (Other)
  Sender: FDA-Public Use
  Company Number: IL-PFIZER INC-2008077091

PATIENT
  Age: 72 Year
  Sex: Male

DRUGS (5)
  1. VIAGRA [Suspect]
  2. ACETYLSALICYLIC ACID SRT [Concomitant]
  3. PENEDIL [Concomitant]
  4. NORMITEN [Concomitant]
  5. LANTUS [Concomitant]

REACTIONS (1)
  - RETINAL HAEMORRHAGE [None]
